FAERS Safety Report 4439025-9 (Version None)
Quarter: 2004Q3

REPORT INFORMATION
  Report Type: 
  Country: None (occurrence: None)
  Receive Date: 20040830
  Receipt Date: 20040817
  Transmission Date: 20050211
  Serious: Yes (Other)
  Sender: FDA-Public Use
  Company Number: JP-2004-030430

PATIENT
  Age: 66 Year
  Sex: Male
  Weight: 71.8 kg

DRUGS (18)
  1. FLUDARABINE PHOSPHATE [Suspect]
     Indication: NON-HODGKIN'S LYMPHOMA
     Dosage: SEE IMAGE
     Route: 048
     Dates: start: 20030101, end: 20031124
  2. FLUDARABINE PHOSPHATE [Suspect]
     Indication: NON-HODGKIN'S LYMPHOMA
     Dosage: SEE IMAGE
     Route: 048
     Dates: start: 20030101
  3. FLUDARABINE PHOSPHATE [Suspect]
     Indication: NON-HODGKIN'S LYMPHOMA
     Dosage: SEE IMAGE
     Route: 048
     Dates: start: 20030101
  4. FLUDARABINE PHOSPHATE [Suspect]
     Indication: NON-HODGKIN'S LYMPHOMA
     Dosage: SEE IMAGE
     Route: 048
     Dates: start: 20030101
  5. FLUDARABINE PHOSPHATE [Suspect]
     Indication: NON-HODGKIN'S LYMPHOMA
     Dosage: SEE IMAGE
     Route: 048
     Dates: start: 20030801
  6. HALCION [Concomitant]
  7. NIZORAL [Concomitant]
  8. PURSENNID (SENNOSIDE A+B, SENNOSIDE A+B CALCIUM) [Concomitant]
  9. BACTAR [Concomitant]
  10. FUNGIZONE [Concomitant]
  11. ISODINE GARGLE (POVIDONE-IODINE) [Concomitant]
  12. VALTREX [Concomitant]
  13. ACHROMYCIN-V (TETRACYCLINE HYDROCHLORIDE) [Concomitant]
  14. PL GRAN. (PROMETHAZINE METHYLENE DISALICYLATE, SALICYLAMIDE) [Concomitant]
  15. BROCIN (PRUNUS SEROTINA BARK) [Concomitant]
  16. MEDICON (DEXTROMETHORPHAN HYDROBROMIDE) [Concomitant]
  17. APRICOT KERNEL WATER (PRUNUS ARMENIACA SEED EXTRACT) [Concomitant]
  18. SIMPLE SYRUP [Concomitant]

REACTIONS (6)
  - BONE MARROW DISORDER [None]
  - HERPES ZOSTER [None]
  - HYDRONEPHROSIS [None]
  - MYELODYSPLASTIC SYNDROME [None]
  - PANCYTOPENIA [None]
  - PLEURAL EFFUSION [None]
